FAERS Safety Report 5300350-0 (Version None)
Quarter: 2007Q2

REPORT INFORMATION
  Report Type: 
  Country: None (occurrence: None)
  Receive Date: 20070413
  Receipt Date: 20070413
  Transmission Date: 20071010
  Serious: Yes (Hospitalization)
  Sender: FDA-Public Use
  Company Number: None

PATIENT
  Age: 41 Year
  Sex: Male
  Weight: 92.9874 kg

DRUGS (3)
  1. CELEBREX [Suspect]
     Indication: ARTHRALGIA
     Dosage: 100 MG TABLET ONCE DAILY PO
     Route: 048
     Dates: start: 20030314, end: 20060407
  2. CELEBREX [Suspect]
     Indication: INFLAMMATION
     Dosage: 100 MG TABLET ONCE DAILY PO
     Route: 048
     Dates: start: 20030314, end: 20060407
  3. CELEBREX [Suspect]
     Indication: JOINT SWELLING
     Dosage: 100 MG TABLET ONCE DAILY PO
     Route: 048
     Dates: start: 20030314, end: 20060407

REACTIONS (3)
  - CEREBRAL THROMBOSIS [None]
  - HEMIPLEGIA [None]
  - ISCHAEMIC STROKE [None]
